FAERS Safety Report 15395665 (Version 1)
Quarter: 2018Q3

REPORT INFORMATION
  Report Type: Spontaneous
  Country: US (occurrence: US)
  Receive Date: 20180912
  Receipt Date: 20180912
  Transmission Date: 20181010
  Serious: Yes (Other)
  Sender: FDA-Public Use
  Company Number: None

PATIENT
  Age: 69 Year
  Sex: Female
  Weight: 88.45 kg

DRUGS (4)
  1. LOSARTAN POTASSIUM 50MG TAB GENERIC FOR COZAAR 50MG TABLET [Suspect]
     Active Substance: LOSARTAN POTASSIUM
     Indication: HYPERTENSION
     Dosage: ?          QUANTITY:1 DF DOSAGE FORM;?
     Route: 048
     Dates: start: 20140509, end: 20180717
  2. VITAMIN D [Concomitant]
     Active Substance: CHOLECALCIFEROL
  3. MULTI VITAMIN [Concomitant]
     Active Substance: VITAMINS
  4. VITAMIN B12 [Concomitant]
     Active Substance: CYANOCOBALAMIN

REACTIONS (11)
  - Fatigue [None]
  - Burning sensation [None]
  - Renal pain [None]
  - Myalgia [None]
  - Dysgeusia [None]
  - Blood uric acid increased [None]
  - Abdominal pain upper [None]
  - Pyrexia [None]
  - Back pain [None]
  - Pruritus [None]
  - Blood pressure increased [None]

NARRATIVE: CASE EVENT DATE: 20180419
